FAERS Safety Report 6221118-7 (Version None)
Quarter: 2009Q2

REPORT INFORMATION
  Report Type: 
  Country: None (occurrence: None)
  Receive Date: 20090610
  Receipt Date: 20090604
  Transmission Date: 20091009
  Serious: Yes (Hospitalization)
  Sender: FDA-Public Use
  Company Number: B0577968A

PATIENT
  Sex: Female

DRUGS (8)
  1. SERETIDE [Suspect]
     Indication: ASTHMA
     Dosage: 500MCG TWICE PER DAY
     Route: 055
     Dates: start: 20080702
  2. CELECOXIB [Concomitant]
     Route: 048
     Dates: start: 20090218
  3. FOSAMAC [Concomitant]
     Route: 048
  4. OMEPRAL [Concomitant]
     Route: 048
  5. NORVASC [Concomitant]
     Route: 048
  6. PREDNISOLONE [Concomitant]
     Indication: ASTHMA
     Route: 048
  7. THEO-DUR [Concomitant]
     Indication: ASTHMA
     Route: 048
  8. PREDONINE [Concomitant]
     Indication: ASTHMA
     Route: 048

REACTIONS (1)
  - ASTHMA [None]
